FAERS Safety Report 25468973 (Version 1)
Quarter: 2025Q2

REPORT INFORMATION
  Report Type: Spontaneous
  Country: CA (occurrence: CA)
  Receive Date: 20250623
  Receipt Date: 20250623
  Transmission Date: 20250716
  Serious: Yes (Life-Threatening, Hospitalization, Other)
  Sender: B BRAUN
  Company Number: CA-B.Braun Medical Inc.-2179196

PATIENT
  Age: 68 Year
  Sex: Male
  Weight: 88 kg

DRUGS (19)
  1. HEPARIN SODIUM IN DEXTROSE [Suspect]
     Active Substance: HEPARIN SODIUM
     Indication: Thrombosis prophylaxis
  2. ASPIRIN [Concomitant]
     Active Substance: ASPIRIN
  3. DS% + NS [Concomitant]
  4. Cyclotrepa [Concomitant]
  5. ZOFRAN [Concomitant]
     Active Substance: ONDANSETRON HYDROCHLORIDE
  6. VANCOMYCIN [Concomitant]
     Active Substance: VANCOMYCIN
  7. SOLU-CORTEF [Concomitant]
     Active Substance: HYDROCORTISONE SODIUM SUCCINATE
  8. SEVELAMER [Concomitant]
     Active Substance: SEVELAMER
  9. PREGABALIN [Concomitant]
     Active Substance: PREGABALIN
  10. PREDNISONE [Concomitant]
     Active Substance: PREDNISONE
  11. PIPERACILLIN SODIUM\TAZOBACTAM SODIUM [Concomitant]
     Active Substance: PIPERACILLIN SODIUM\TAZOBACTAM SODIUM
  12. NEORAL [Concomitant]
     Active Substance: CYCLOSPORINE
  13. METOPROLOL [Concomitant]
     Active Substance: METOPROLOL
  14. DILAUDID [Concomitant]
     Active Substance: HYDROMORPHONE HYDROCHLORIDE
  15. DEXILANT [Concomitant]
     Active Substance: DEXLANSOPRAZOLE
  16. CALCIUM CARBONATE [Concomitant]
     Active Substance: CALCIUM CARBONATE
  17. AMOXICILLIN\CLAVULANIC ACID [Concomitant]
     Active Substance: AMOXICILLIN\CLAVULANIC ACID
  18. ALLOPURINOL [Concomitant]
     Active Substance: ALLOPURINOL
  19. ALFUZOSIN [Concomitant]
     Active Substance: ALFUZOSIN

REACTIONS (5)
  - Septic shock [Recovered/Resolved]
  - Shock haemorrhagic [Recovered/Resolved]
  - Retroperitoneal haematoma [Recovered/Resolved]
  - Peritoneal haematoma [Recovered/Resolved]
  - Transfusion [Recovered/Resolved]
